FAERS Safety Report 5716390-3 (Version None)
Quarter: 2008Q2

REPORT INFORMATION
  Report Type: 
  Country: None (occurrence: None)
  Receive Date: 20080415
  Receipt Date: 20080227
  Transmission Date: 20081010
  Serious: Yes (Hospitalization, Disabling)
  Sender: FDA-Public Use
  Company Number: PHEH2008US00974

PATIENT
  Age: 63 Year
  Sex: Female
  Weight: 92.1 kg

DRUGS (8)
  1. EXFORGE [Suspect]
     Indication: HYPERTENSION
     Dosage: 160/5MG, QD, ORAL
     Route: 048
     Dates: start: 20071108, end: 20080115
  2. LIPITOR [Suspect]
     Indication: HYPERLIPIDAEMIA
     Dosage: 40 MG, QHS
     Dates: start: 20060612
  3. POTASSIUM CHLORIDE [Concomitant]
  4. HUMALOG [Concomitant]
  5. LANTUS [Concomitant]
  6. CLONIDINE [Concomitant]
  7. CALCIUM W/VITAMIN D NOS (CALCIUM, VITAMIN D NOS) [Concomitant]
  8. NOVOLOG [Concomitant]

REACTIONS (24)
  - ACTIVITIES OF DAILY LIVING IMPAIRED [None]
  - ALANINE AMINOTRANSFERASE INCREASED [None]
  - ALBUMIN URINE PRESENT [None]
  - ALDOLASE INCREASED [None]
  - ASPARTATE AMINOTRANSFERASE INCREASED [None]
  - BLOOD ALBUMIN DECREASED [None]
  - BLOOD CREATINE PHOSPHOKINASE INCREASED [None]
  - BLOOD GLUCOSE INCREASED [None]
  - BLOOD URINE PRESENT [None]
  - C-REACTIVE PROTEIN INCREASED [None]
  - CATARACT [None]
  - CREATININE URINE INCREASED [None]
  - DIABETES MELLITUS INADEQUATE CONTROL [None]
  - DIARRHOEA [None]
  - FATIGUE [None]
  - GLYCOSYLATED HAEMOGLOBIN INCREASED [None]
  - MUSCULAR WEAKNESS [None]
  - MYOGLOBIN BLOOD PRESENT [None]
  - PALLOR [None]
  - PROTEIN TOTAL DECREASED [None]
  - RED BLOOD CELL SEDIMENTATION RATE INCREASED [None]
  - RHABDOMYOLYSIS [None]
  - URINE ALBUMIN/CREATININE RATIO [None]
  - WHITE BLOOD CELLS URINE POSITIVE [None]
